FAERS Safety Report 9244520 (Version 2)
Quarter: 2013Q2

REPORT INFORMATION
  Report Type: Spontaneous
  Country: JP (occurrence: JP)
  Receive Date: 20130422
  Receipt Date: 20130429
  Transmission Date: 20140414
  Serious: Yes (Death, Other)
  Sender: FDA-Public Use
  Company Number: JP-PFIZER INC-2013122977

PATIENT
  Age: 70 Year
  Sex: Male
  Weight: 52.6 kg

DRUGS (6)
  1. LYRICA [Suspect]
     Indication: POST HERPETIC NEURALGIA
     Dosage: 75 MG, 2X/DAY
     Route: 048
     Dates: start: 20121101, end: 20121122
  2. ADALAT CR [Concomitant]
     Indication: HYPERTENSION
     Dosage: 40 MG DAILY
     Route: 048
     Dates: start: 20081113
  3. OLMETEC [Concomitant]
     Indication: HYPERTENSION
     Dosage: 40 MG DAILY
     Route: 048
     Dates: start: 20090423
  4. ARTIST [Concomitant]
     Indication: HYPERTENSION
     Dosage: 20 MG DAILY
     Route: 048
     Dates: start: 20090910
  5. URSO [Concomitant]
     Indication: AUTOIMMUNE HEPATITIS
     Dosage: 300 MG DAILY
     Route: 048
  6. GLYCYRON [Concomitant]
     Indication: AUTOIMMUNE HEPATITIS
     Dosage: UNK
     Route: 048
     Dates: start: 20121102

REACTIONS (7)
  - Rhabdomyolysis [Fatal]
  - Renal failure acute [Fatal]
  - Cardio-respiratory arrest [Fatal]
  - Hyperkalaemia [Fatal]
  - Malaise [Unknown]
  - Dysstasia [Unknown]
  - Tremor [Unknown]
